FAERS Safety Report 24218638 (Version 4)
Quarter: 2025Q4

REPORT INFORMATION
  Report Type: Report from Study
  Country: CA (occurrence: CA)
  Receive Date: 20240816
  Receipt Date: 20251230
  Transmission Date: 20260117
  Serious: Yes (Hospitalization, Other)
  Sender: TAKEDA
  Company Number: CA-TAKEDA-2023TUS015123

PATIENT
  Age: 50 Year
  Sex: Female
  Weight: 59 kg

DRUGS (33)
  1. HUMAN IMMUNOGLOBULIN G [Suspect]
     Active Substance: HUMAN IMMUNOGLOBULIN G
     Indication: Primary immunodeficiency syndrome
     Dosage: 9 GRAM, 1/WEEK
  2. HUMAN IMMUNOGLOBULIN G [Suspect]
     Active Substance: HUMAN IMMUNOGLOBULIN G
     Indication: Immunodeficiency common variable
     Dosage: 14 GRAM, 1/WEEK
  3. HUMAN IMMUNOGLOBULIN G [Suspect]
     Active Substance: HUMAN IMMUNOGLOBULIN G
     Dosage: 14 GRAM, 1/WEEK
  4. HUMAN IMMUNOGLOBULIN G [Suspect]
     Active Substance: HUMAN IMMUNOGLOBULIN G
     Dosage: 16 GRAM, 1/WEEK
  5. HUMAN IMMUNOGLOBULIN G [Suspect]
     Active Substance: HUMAN IMMUNOGLOBULIN G
     Dosage: 24 GRAM, 1/WEEK
     Dates: start: 20200316
  6. HUMAN IMMUNOGLOBULIN G [Suspect]
     Active Substance: HUMAN IMMUNOGLOBULIN G
     Dosage: UNK UNK, 1/WEEK
     Dates: start: 20200316
  7. GABAPENTIN [Concomitant]
     Active Substance: GABAPENTIN
     Dosage: 1600 MILLIGRAM, TID
  8. TRAMADOL HYDROCHLORIDE [Concomitant]
     Active Substance: TRAMADOL HYDROCHLORIDE
     Dosage: 300 MILLIGRAM, QD
  9. NABILONE [Concomitant]
     Active Substance: NABILONE
     Dosage: 5 MILLIGRAM
  10. ZOPICLONE [Concomitant]
     Active Substance: ZOPICLONE
     Dosage: UNK UNK, QD
  11. SEROQUEL [Concomitant]
     Active Substance: QUETIAPINE FUMARATE
     Dosage: 50 MILLIGRAM
  12. ATIVAN [Concomitant]
     Active Substance: LORAZEPAM
     Dosage: UNK
  13. MONTELUKAST SODIUM [Concomitant]
     Active Substance: MONTELUKAST SODIUM
     Dosage: 10 MILLIGRAM
  14. VENTOLIN [Concomitant]
     Active Substance: ALBUTEROL SULFATE
     Dosage: UNK UNK, QD
  15. SPIRIVA [Concomitant]
     Active Substance: TIOTROPIUM BROMIDE MONOHYDRATE
     Dosage: UNK
  16. FLONASE [Concomitant]
     Active Substance: FLUTICASONE PROPIONATE
     Dosage: UNK
  17. MYRBETRIQ [Concomitant]
     Active Substance: MIRABEGRON
     Dosage: 50 MILLIGRAM
  18. CELECO [Concomitant]
     Dosage: UNK
  19. NUCALA [Concomitant]
     Active Substance: MEPOLIZUMAB
     Dosage: UNK
  20. AZITHROMYCIN [Concomitant]
     Active Substance: AZITHROMYCIN
     Dosage: UNK
  21. Reactine [Concomitant]
     Dosage: UNK
  22. LORAZEPAM [Concomitant]
     Active Substance: LORAZEPAM
     Dosage: UNK
  23. TRAMADOL [Concomitant]
     Active Substance: TRAMADOL
     Dosage: UNK
  24. CELECOXIB [Concomitant]
     Active Substance: CELECOXIB
     Dosage: UNK
  25. MIRTAZAPINE [Concomitant]
     Active Substance: MIRTAZAPINE
     Dosage: 30 MILLIGRAM
  26. QUETIAPINE [Concomitant]
     Active Substance: QUETIAPINE
     Dosage: UNK
  27. SINGULAIR [Concomitant]
     Active Substance: MONTELUKAST SODIUM
     Dosage: UNK
  28. ASPIRIN [Concomitant]
     Active Substance: ASPIRIN
     Dosage: UNK
  29. ALVESCO [Concomitant]
     Active Substance: CICLESONIDE
     Dosage: UNK
  30. ZOPICLONE [Concomitant]
     Active Substance: ZOPICLONE
     Dosage: UNK
  31. CITALOPRAM [Concomitant]
     Active Substance: CITALOPRAM
  32. BREO ELLIPTA [Concomitant]
     Active Substance: FLUTICASONE FUROATE\VILANTEROL TRIFENATATE
     Dosage: 1 DOSAGE FORM, QD
  33. MIRTAZAPINE [Concomitant]
     Active Substance: MIRTAZAPINE
     Dosage: 30 MILLIGRAM

REACTIONS (11)
  - Lung neoplasm malignant [Unknown]
  - Viral upper respiratory tract infection [Unknown]
  - Blood immunoglobulin G decreased [Unknown]
  - Weight increased [Unknown]
  - Infection [Recovering/Resolving]
  - Product dose omission issue [Unknown]
  - Rhinorrhoea [Unknown]
  - Oxygen saturation decreased [Unknown]
  - Cough [Unknown]
  - Dyspnoea [Unknown]
  - Diarrhoea [Unknown]
